FAERS Safety Report 24455556 (Version 2)
Quarter: 2024Q4

REPORT INFORMATION
  Report Type: Spontaneous
  Country: US (occurrence: US)
  Receive Date: 20241017
  Receipt Date: 20241018
  Transmission Date: 20250115
  Serious: No
  Sender: ROCHE
  Company Number: US-ROCHE-3493475

PATIENT
  Age: 16 Year
  Sex: Male

DRUGS (5)
  1. RITUXIMAB [Suspect]
     Active Substance: RITUXIMAB
     Indication: Immunosuppression
     Dosage: 2 DOSES
     Route: 065
     Dates: start: 202203
  2. VALPROIC ACID [Concomitant]
     Active Substance: VALPROIC ACID
  3. TOPIRAMATE [Concomitant]
     Active Substance: TOPIRAMATE
  4. SOLU-MEDROL [Concomitant]
     Active Substance: METHYLPREDNISOLONE SODIUM SUCCINATE
     Route: 042
  5. PREDNISONE [Concomitant]
     Active Substance: PREDNISONE

REACTIONS (2)
  - Parainfluenzae virus infection [Unknown]
  - COVID-19 [Unknown]
